FAERS Safety Report 16781494 (Version 1)
Quarter: 2019Q3

REPORT INFORMATION
  Report Type: Spontaneous
  Country: DE (occurrence: DE)
  Receive Date: 20190906
  Receipt Date: 20190906
  Transmission Date: 20191005
  Serious: Yes (Other)
  Sender: FDA-Public Use
  Company Number: DE-PFIZER INC-2019383815

PATIENT
  Age: 89 Year
  Sex: Male
  Weight: 95 kg

DRUGS (2)
  1. GABAPENTIN. [Suspect]
     Active Substance: GABAPENTIN
     Dosage: 900 MG, DAILY
  2. MARCUMAR [Concomitant]
     Active Substance: PHENPROCOUMON
     Dosage: 0.5 DF, DAILY

REACTIONS (1)
  - Prothrombin time shortened [Unknown]
